FAERS Safety Report 7201582-7 (Version None)
Quarter: 2010Q4

REPORT INFORMATION
  Report Type: 
  Country: None (occurrence: None)
  Receive Date: 20101216
  Receipt Date: 20101206
  Transmission Date: 20110411
  Serious: Yes (Death, Hospitalization, Other)
  Sender: FDA-Public Use
  Company Number: 85732-1

PATIENT
  Age: 45 Year
  Sex: Male
  Weight: 85 kg

DRUGS (1)
  1. ETOPOSIDE [Suspect]
     Dosage: 50MG
     Dates: start: 20090626, end: 20101002

REACTIONS (9)
  - DYSPHAGIA [None]
  - HYPERTENSION [None]
  - LARYNGITIS [None]
  - LEUKOPENIA [None]
  - NEUTROPENIA [None]
  - RADIATION OESOPHAGITIS [None]
  - THROMBOPHLEBITIS [None]
  - VARICOSE VEIN [None]
  - VOMITING [None]
